FAERS Safety Report 15598691 (Version 1)
Quarter: 2018Q4

REPORT INFORMATION
  Report Type: Report from Study
  Country: None (occurrence: US)
  Receive Date: 20181108
  Receipt Date: 20181108
  Transmission Date: 20190205
  Serious: Yes (Other)
  Sender: FDA-Public Use
  Company Number: US-OREXO US, INC.-ORE201810-000118

PATIENT

DRUGS (1)
  1. BUPRENORPHINE / NALOXONE [Suspect]
     Active Substance: BUPRENORPHINE\NALOXONE
     Route: 013

REACTIONS (2)
  - Ischaemia [Unknown]
  - Wrong technique in product usage process [Unknown]
